FAERS Safety Report 14631051 (Version 2)
Quarter: 2018Q2

REPORT INFORMATION
  Report Type: Report from Study
  Country: US (occurrence: US)
  Receive Date: 20180313
  Receipt Date: 20180416
  Transmission Date: 20180711
  Serious: No
  Sender: FDA-Public Use
  Company Number: PHEH2018US009886

PATIENT
  Age: 15 Year
  Sex: Male
  Weight: 93.7 kg

DRUGS (1)
  1. ILARIS [Suspect]
     Active Substance: CANAKINUMAB
     Indication: JUVENILE IDIOPATHIC ARTHRITIS
     Dosage: 160 MG, Q4W, UNDER THE SKIN
     Route: 058

REACTIONS (4)
  - Influenza [Unknown]
  - Animal scratch [Unknown]
  - Skin depigmentation [Unknown]
  - Acne [Unknown]

NARRATIVE: CASE EVENT DATE: 20180203
